FAERS Safety Report 19679420 (Version 1)
Quarter: 2021Q3

REPORT INFORMATION
  Report Type: Spontaneous
  Country: US (occurrence: US)
  Receive Date: 20210809
  Receipt Date: 20210809
  Transmission Date: 20211014
  Serious: Yes (Other)
  Sender: FDA-Public Use
  Company Number: NVSC2021US177247

PATIENT
  Sex: Female

DRUGS (1)
  1. ESTRADIOL. [Suspect]
     Active Substance: ESTRADIOL
     Indication: MENOPAUSE
     Dosage: UNK
     Route: 062

REACTIONS (8)
  - Ankylosing spondylitis [Unknown]
  - Blood oestrogen abnormal [Unknown]
  - Connective tissue disorder [Unknown]
  - Pain [Unknown]
  - Alstroem syndrome [Unknown]
  - Feeling abnormal [Unknown]
  - Systemic lupus erythematosus [Unknown]
  - Endometriosis [Unknown]
